FAERS Safety Report 14859584 (Version 2)
Quarter: 2018Q2

REPORT INFORMATION
  Report Type: Spontaneous
  Country: US (occurrence: US)
  Receive Date: 20180508
  Receipt Date: 20180611
  Transmission Date: 20180711
  Serious: No
  Sender: FDA-Public Use
  Company Number: US-PFIZER INC-2017523984

PATIENT
  Age: 62 Year
  Sex: Female

DRUGS (24)
  1. DOCETAXEL. [Suspect]
     Active Substance: DOCETAXEL
     Indication: INVASIVE DUCTAL BREAST CARCINOMA
     Dosage: 114.8 MG, CYCLIC EVERY THREE WEEKS (06 CYCLES)
     Dates: start: 20141021
  2. PARAPLATIN [Concomitant]
     Active Substance: CARBOPLATIN
     Indication: BREAST CANCER FEMALE
     Dosage: 440 MG, UNK
     Dates: start: 20140909, end: 20140930
  3. DOCETAXEL. [Suspect]
     Active Substance: DOCETAXEL
     Dosage: 114.8 MG, CYCLIC EVERY THREE WEEKS (06 CYCLES)
     Dates: start: 20141111
  4. HYDROCHLOROTHIAZIDE. [Concomitant]
     Active Substance: HYDROCHLOROTHIAZIDE
     Dosage: UNK
     Dates: start: 2000
  5. ONDANSETRON [Concomitant]
     Active Substance: ONDANSETRON
     Dosage: UNK
  6. CETIRIZINE [Concomitant]
     Active Substance: CETIRIZINE HYDROCHLORIDE
     Dosage: UNK
  7. DOCETAXEL. [Suspect]
     Active Substance: DOCETAXEL
     Indication: BREAST CANCER FEMALE
     Dosage: 114.8 MG, CYCLIC EVERY THREE WEEKS (06 CYCLES)
     Dates: start: 20140909, end: 20140930
  8. TAXOTERE [Suspect]
     Active Substance: DOCETAXEL
     Dosage: 114.8 MG, CYCLIC EVERY THREE WEEKS (06 CYCLES)
     Dates: start: 20141111
  9. DOCETAXEL. [Suspect]
     Active Substance: DOCETAXEL
     Dosage: 114.8 MG, CYCLIC EVERY THREE WEEKS (06 CYCLES)
     Dates: end: 20141223
  10. TAXOTERE [Suspect]
     Active Substance: DOCETAXEL
     Indication: BREAST CANCER FEMALE
     Dosage: 114.8 MG, CYCLIC EVERY THREE WEEKS (06 CYCLES)
     Dates: start: 20140909, end: 20140930
  11. TAXOTERE [Suspect]
     Active Substance: DOCETAXEL
     Dosage: 114.8 MG, CYCLIC EVERY THREE WEEKS (06 CYCLES)
     Dates: start: 20141202
  12. PARAPLATIN [Concomitant]
     Active Substance: CARBOPLATIN
     Dosage: 509 MG, UNK
     Dates: start: 20141111
  13. PARAPLATIN [Concomitant]
     Active Substance: CARBOPLATIN
     Dosage: 532 MG, UNK
     Dates: start: 20141223, end: 20141223
  14. TAXOTERE [Suspect]
     Active Substance: DOCETAXEL
     Dosage: 114.8 MG, CYCLIC EVERY THREE WEEKS (06 CYCLES)
     Dates: start: 20141223, end: 20141223
  15. PARAPLATIN [Concomitant]
     Active Substance: CARBOPLATIN
     Dosage: 499 MG, UNK
     Dates: start: 20141202
  16. BUPROPION. [Concomitant]
     Active Substance: BUPROPION
     Dosage: UNK
     Dates: start: 2000
  17. FILGRASTIM [Concomitant]
     Active Substance: FILGRASTIM
     Dosage: UNK
  18. HYDROCHLORTHIAZID [Concomitant]
     Active Substance: HYDROCHLOROTHIAZIDE
     Dosage: UNK
  19. OMEPRAZOLE. [Concomitant]
     Active Substance: OMEPRAZOLE
     Dosage: UNK
     Dates: start: 2000
  20. ANASTROZOLE. [Concomitant]
     Active Substance: ANASTROZOLE
     Indication: HORMONE THERAPY
     Dosage: UNK
     Dates: start: 201503
  21. DOCETAXEL. [Suspect]
     Active Substance: DOCETAXEL
     Dosage: 114.8 MG, CYCLIC EVERY THREE WEEKS (06 CYCLES)
     Dates: start: 20141202
  22. TAXOTERE [Suspect]
     Active Substance: DOCETAXEL
     Indication: INVASIVE DUCTAL BREAST CARCINOMA
     Dosage: 114.8 MG, CYCLIC EVERY THREE WEEKS (06 CYCLES)
     Dates: start: 20141021
  23. PARAPLATIN [Concomitant]
     Active Substance: CARBOPLATIN
     Indication: INVASIVE DUCTAL BREAST CARCINOMA
     Dosage: 496 MG, UNK
     Dates: start: 20141021
  24. DECADRON [Concomitant]
     Active Substance: DEXAMETHASONE
     Dosage: UNK

REACTIONS (6)
  - Depression [Unknown]
  - Hair colour changes [Not Recovered/Not Resolved]
  - Hair texture abnormal [Not Recovered/Not Resolved]
  - Alopecia [Not Recovered/Not Resolved]
  - Hair disorder [Not Recovered/Not Resolved]
  - Madarosis [Not Recovered/Not Resolved]

NARRATIVE: CASE EVENT DATE: 2015
